FAERS Safety Report 23052248 (Version 3)
Quarter: 2023Q4

REPORT INFORMATION
  Report Type: Report from Study
  Country: US (occurrence: US)
  Receive Date: 20231010
  Receipt Date: 20231207
  Transmission Date: 20240109
  Serious: Yes (Other)
  Sender: FDA-Public Use
  Company Number: US-ABBVIE-5443630

PATIENT
  Sex: Female

DRUGS (3)
  1. RINVOQ [Suspect]
     Active Substance: UPADACITINIB
     Indication: Psoriatic arthropathy
     Dosage: LAST ADMIN DATE- 2023?ER?STRENGTH 15MG
     Route: 048
     Dates: start: 20230228
  2. RINVOQ [Suspect]
     Active Substance: UPADACITINIB
     Indication: Psoriatic arthropathy
     Dosage: ER?STRENGTH 15MG?LAST ADMIN DATE- 2023
     Route: 048
     Dates: start: 202303
  3. RINVOQ [Suspect]
     Active Substance: UPADACITINIB
     Indication: Psoriatic arthropathy
     Dosage: ER?STRENGTH 15MG
     Route: 048
     Dates: start: 2023, end: 2023

REACTIONS (6)
  - Knee arthroplasty [Unknown]
  - Upper respiratory tract infection [Unknown]
  - Intervertebral disc protrusion [Unknown]
  - Malaise [Recovering/Resolving]
  - Postoperative wound infection [Unknown]
  - Back pain [Recovering/Resolving]

NARRATIVE: CASE EVENT DATE: 20230101
